FAERS Safety Report 21964780 (Version 1)
Quarter: 2023Q1

REPORT INFORMATION
  Report Type: Report from Study
  Country: US (occurrence: US)
  Receive Date: 20230207
  Receipt Date: 20230207
  Transmission Date: 20230418
  Serious: Yes (Hospitalization, Other)
  Sender: FDA-Public Use
  Company Number: US-TAKEDA-2023TUS012020

PATIENT
  Age: 55 Year
  Sex: Female
  Weight: 73 kg

DRUGS (1)
  1. PONATINIB [Suspect]
     Active Substance: PONATINIB
     Indication: Acute lymphocytic leukaemia
     Dosage: UNK
     Route: 065
     Dates: start: 202210

REACTIONS (2)
  - Breast haemorrhage [Recovered/Resolved]
  - Breast discharge [Recovered/Resolved]
